FAERS Safety Report 8583020 (Version 6)
Quarter: 2012Q4

REPORT INFORMATION
  Report Type: 
  Country: GB (occurrence: GB)
  Receive Date: 20120529
  Receipt Date: 20120828
  Transmission Date: 20130627
  Serious: Yes (Death, Other)
  Sender: FDA-Public Use
  Company Number: PHHY2012GB044934

PATIENT
  Age: 40 Year
  Sex: Male
  Weight: 104 kg

DRUGS (22)
  1. CLARITHROMYCIN [Suspect]
     Indication: LOWER RESPIRATORY TRACT INFECTION
     Dosage: 500 mg, BID
     Route: 048
     Dates: start: 20111028
  2. CLARITHROMYCIN [Interacting]
     Indication: PHARYNGITIS
  3. HUMIRA [Suspect]
     Indication: CROHN^S DISEASE
     Route: 058
     Dates: start: 20111005
  4. HUMIRA [Suspect]
     Dosage: 40 mg
     Route: 030
     Dates: start: 20111005
  5. METHADONE [Interacting]
     Indication: PAIN
     Dosage: 45 ml, BID
     Route: 048
     Dates: start: 20111025
  6. METHADONE [Interacting]
     Indication: CROHN^S DISEASE
     Dosage: 40 ml, BID
     Route: 048
     Dates: start: 20111027
  7. METHADONE [Interacting]
     Dosage: 35 ml, BID
     Route: 048
     Dates: start: 20111028
  8. ADCAL-D3 [Concomitant]
     Indication: CROHN^S DISEASE
     Dosage: 1 DF, BID
     Route: 048
     Dates: start: 20110808
  9. ADCAL-D3 [Concomitant]
     Indication: BONE DISORDER
  10. DIAZEPAM [Concomitant]
     Indication: ANXIETY
     Dosage: 2 mg
     Route: 048
     Dates: start: 20111019
  11. LANSOPRAZOLE [Concomitant]
     Indication: GASTRITIS
     Dosage: 30 mg, QD
     Route: 048
     Dates: start: 20111019
  12. LANSOPRAZOLE [Concomitant]
     Indication: DYSPEPSIA
     Dosage: 30 mg, QD
  13. MULTIVITAMINS [Concomitant]
  14. VENTOLIN [Concomitant]
     Dosage: 100 ug, UNK
  15. ORAMORPH [Concomitant]
     Indication: PAIN
     Dosage: 100 mg, QD
     Route: 048
     Dates: start: 201102, end: 20111025
  16. ORAMORPH [Concomitant]
     Indication: CROHN^S DISEASE
  17. ASCORBIC ACID [Concomitant]
     Dates: start: 20111006
  18. HYDROXOCOBALAMIN [Concomitant]
     Indication: VITAMIN D DEFICIENCY
     Dosage: 1 DF, UNK
  19. MST CONTINUS [Concomitant]
     Indication: PAIN
     Dosage: 20 mg, QD
     Route: 048
  20. NUTRITIONAL SUPPLEMENT [Concomitant]
     Indication: NUTRITIONAL SUPPORT
     Dosage: 1 DF, UNK
     Route: 048
     Dates: start: 20110105
  21. PARACETAMOL [Concomitant]
     Indication: PAIN
     Dosage: 1 g, UNK
  22. VITAMIN SUPPLEMENT [Concomitant]
     Indication: NUTRITIONAL SUPPORT
     Dates: start: 20110623

REACTIONS (46)
  - Diffuse alveolar damage [Fatal]
  - Pulmonary congestion [Fatal]
  - Pulmonary oedema [Fatal]
  - Chest pain [Fatal]
  - Crohn^s disease [Fatal]
  - Rectal haemorrhage [Fatal]
  - Vomiting [Fatal]
  - Toxicity to various agents [Fatal]
  - Hyperhidrosis [Fatal]
  - Tremor [Fatal]
  - Somnolence [Fatal]
  - Dysarthria [Fatal]
  - Heart rate increased [Fatal]
  - Inhibitory drug interaction [Fatal]
  - Cardiac hypertrophy [Unknown]
  - Blood urine [Unknown]
  - Aggression [Unknown]
  - Vision blurred [Unknown]
  - Confusional state [Unknown]
  - Diplopia [Unknown]
  - Immunosuppression [Unknown]
  - Infection [Unknown]
  - Pyrexia [Unknown]
  - Hepatic steatosis [Unknown]
  - Hepatomegaly [Unknown]
  - Splenomegaly [Unknown]
  - Hiccups [Unknown]
  - Pharyngeal erythema [Unknown]
  - Headache [Unknown]
  - Oropharyngeal pain [Unknown]
  - Erythema [Unknown]
  - Malaise [Unknown]
  - Pain [Unknown]
  - Dysuria [Unknown]
  - Dizziness [Unknown]
  - White blood cell count decreased [Unknown]
  - Blood albumin increased [None]
  - Blood pressure decreased [None]
  - Red blood cell count decreased [None]
  - Incorrect dose administered [None]
  - C-reactive protein increased [None]
  - Potentiating drug interaction [None]
  - White blood cell count increased [None]
  - Malaise [None]
  - Spleen congestion [None]
  - Toxicity to various agents [None]
